FAERS Safety Report 8836658 (Version 1)
Quarter: 2012Q4

REPORT INFORMATION
  Report Type: Spontaneous
  Country: GB (occurrence: None)
  Receive Date: 20121010
  Receipt Date: 20121010
  Transmission Date: 20130627
  Serious: Yes (Hospitalization)
  Sender: FDA-Public Use
  Company Number: 2012HINREG0087

PATIENT
  Age: 20 Year
  Sex: Female
  Weight: 62 kg

DRUGS (3)
  1. LEVETIRACETAM [Suspect]
     Indication: EPILEPSY GRAND MAL
     Route: 048
  2. CITALOPRAM [Concomitant]
  3. CODEINE [Concomitant]

REACTIONS (1)
  - Pancreatitis acute [None]
